FAERS Safety Report 10072207 (Version 1)
Quarter: 2014Q2

REPORT INFORMATION
  Report Type: Spontaneous
  Country: US (occurrence: None)
  Receive Date: 20140410
  Receipt Date: 20140410
  Transmission Date: 20141212
  Serious: Yes (Disabling)
  Sender: FDA-Public Use
  Company Number: None

PATIENT
  Age: 13 Year
  Sex: 0
  Weight: 99.79 kg

DRUGS (3)
  1. RESPRADOL (RISPERDAL) [Suspect]
     Indication: DEPRESSION
     Dosage: 1 PILL
     Route: 048
  2. RESPRADOL (RISPERDAL) [Suspect]
     Indication: BIPOLAR DISORDER
     Dosage: 1 PILL
     Route: 048
  3. RESPRADOL (RISPERDAL) [Suspect]
     Indication: ANXIETY
     Dosage: 1 PILL
     Route: 048

REACTIONS (2)
  - Drug ineffective [None]
  - Breast enlargement [None]
